FAERS Safety Report 8969455 (Version 4)
Quarter: 2013Q1

REPORT INFORMATION
  Report Type: Spontaneous
  Country: JP (occurrence: JP)
  Receive Date: 20121218
  Receipt Date: 20130222
  Transmission Date: 20140127
  Serious: Yes (Hospitalization)
  Sender: FDA-Public Use
  Company Number: JP-ABBOTT-12P-087-1023492-00

PATIENT
  Age: 64 Year
  Sex: Female
  Weight: 40 kg

DRUGS (8)
  1. KLARICID [Suspect]
     Indication: MYCOBACTERIUM AVIUM COMPLEX INFECTION
     Dates: start: 2003
  2. KLARICID [Suspect]
     Dates: start: 200801, end: 201105
  3. KLARICID [Suspect]
     Dates: start: 201110, end: 201111
  4. EXEMESTANE [Concomitant]
     Indication: PRODUCT USED FOR UNKNOWN INDICATION
  5. ETHAMBUTAL [Concomitant]
     Indication: MYCOBACTERIUM AVIUM COMPLEX INFECTION
     Dates: start: 200801, end: 201105
  6. ETHAMBUTAL [Concomitant]
     Dates: start: 201110
  7. RIFAMPICIN [Concomitant]
     Indication: MYCOBACTERIUM AVIUM COMPLEX INFECTION
     Dates: start: 200801, end: 201105
  8. RIFAMPICIN [Concomitant]
     Dates: start: 201110

REACTIONS (2)
  - Mycobacterium avium complex infection [Unknown]
  - Hypoaesthesia [Recovered/Resolved]
